FAERS Safety Report 8165365-6 (Version None)
Quarter: 2012Q1

REPORT INFORMATION
  Report Type: 
  Country: None (occurrence: None)
  Receive Date: 20120227
  Receipt Date: 20111024
  Transmission Date: 20120608
  Serious: No
  Sender: FDA-Public Use
  Company Number: US-MYLANLABS-2011S1022105

PATIENT
  Age: 60 Year
  Sex: Male
  Weight: 70.76 kg

DRUGS (1)
  1. METFORMIN HCL [Suspect]
     Indication: DIABETES MELLITUS
     Route: 048
     Dates: start: 20110916, end: 20111015

REACTIONS (2)
  - DRUG INEFFECTIVE [None]
  - BLOOD GLUCOSE INCREASED [None]
